FAERS Safety Report 4937724-3 (Version None)
Quarter: 2006Q1

REPORT INFORMATION
  Report Type: 
  Country: None (occurrence: None)
  Receive Date: 20060309
  Receipt Date: 20060228
  Transmission Date: 20060701
  Serious: Yes (Hospitalization)
  Sender: FDA-Public Use
  Company Number: US-JNJFOC-20060300493

PATIENT
  Sex: Female
  Weight: 121.56 kg

DRUGS (27)
  1. REMICADE [Suspect]
     Indication: RHEUMATOID ARTHRITIS
     Route: 042
  2. ENBREL [Concomitant]
  3. METHOTREXATE [Concomitant]
     Dosage: 60.5 EVERY SUNDAY
  4. DIOVAN [Concomitant]
  5. TYLENOL (CAPLET) [Concomitant]
  6. LARYLIN [Concomitant]
  7. MULTI-VITAMIN [Concomitant]
  8. MULTI-VITAMIN [Concomitant]
  9. MULTI-VITAMIN [Concomitant]
  10. MULTI-VITAMIN [Concomitant]
  11. MULTI-VITAMIN [Concomitant]
  12. MULTI-VITAMIN [Concomitant]
  13. MULTI-VITAMIN [Concomitant]
  14. MULTI-VITAMIN [Concomitant]
  15. ASPIRIN [Concomitant]
  16. NUMEDA [Concomitant]
  17. FOLIC ACID [Concomitant]
  18. CEMPOLTA [Concomitant]
  19. LODINE [Concomitant]
  20. IRON [Concomitant]
  21. B-12 [Concomitant]
  22. TRAZODONE [Concomitant]
  23. DARVOCET [Concomitant]
  24. DARVOCET [Concomitant]
  25. ADAVIN [Concomitant]
  26. MIGRANAL [Concomitant]
     Dosage: 4 MG VIAL AS NEEDED
     Route: 045
  27. PREVACID DR [Concomitant]

REACTIONS (3)
  - ABASIA [None]
  - HEADACHE [None]
  - PARAESTHESIA [None]
